FAERS Safety Report 7897221-2 (Version None)
Quarter: 2011Q4

REPORT INFORMATION
  Report Type: 
  Country: None (occurrence: None)
  Receive Date: 20111028
  Receipt Date: 20111028
  Transmission Date: 20120403
  Serious: Yes (Life-Threatening)
  Sender: FDA-Public Use
  Company Number: ALL1-2011-01717

PATIENT
  Age: 10 Year
  Sex: Male
  Weight: 27.2 kg

DRUGS (3)
  1. INTUNIV [Suspect]
     Indication: ATTENTION DEFICIT/HYPERACTIVITY DISORDER
     Dosage: 1 MG UNKNOWN ORAL
     Route: 048
  2. LEVOTHYROXINE SODIUM [Concomitant]
  3. DEPAKOTE [Concomitant]

REACTIONS (1)
  - HEART RATE DECREASED [None]
